FAERS Safety Report 17592159 (Version 1)
Quarter: 2020Q1

REPORT INFORMATION
  Report Type: Spontaneous
  Country: FR (occurrence: FR)
  Receive Date: 20200327
  Receipt Date: 20200327
  Transmission Date: 20200409
  Serious: Yes (Hospitalization)
  Sender: FDA-Public Use
  Company Number: FR-MYLANLABS-2020M1033127

PATIENT
  Age: 61 Year
  Sex: Female
  Weight: 91 kg

DRUGS (1)
  1. AZITHROMYCIN ANHYDROUS. [Suspect]
     Active Substance: AZITHROMYCIN ANHYDROUS
     Indication: LUNG DISORDER
     Dosage: 500 MG ? J1 PUIS 250 MG/JOUR ? J2 ET J3
     Route: 048
     Dates: start: 20200220, end: 20200222

REACTIONS (3)
  - Thrombocytopenia [Recovering/Resolving]
  - Purpura [Recovering/Resolving]
  - Angina bullosa haemorrhagica [Recovering/Resolving]

NARRATIVE: CASE EVENT DATE: 20200222
